FAERS Safety Report 19024451 (Version 1)
Quarter: 2021Q1

REPORT INFORMATION
  Report Type: Spontaneous
  Country: BR (occurrence: BR)
  Receive Date: 20210318
  Receipt Date: 20210318
  Transmission Date: 20210420
  Serious: Yes (Other)
  Sender: FDA-Public Use
  Company Number: BR-ROCHE-2783798

PATIENT
  Age: 77 Year
  Sex: Female

DRUGS (10)
  1. LUCENTIS [Suspect]
     Active Substance: RANIBIZUMAB
     Indication: PRODUCT USED FOR UNKNOWN INDICATION
     Route: 065
     Dates: start: 201402
  2. LUCENTIS [Suspect]
     Active Substance: RANIBIZUMAB
     Route: 065
     Dates: start: 201408
  3. LUCENTIS [Suspect]
     Active Substance: RANIBIZUMAB
     Route: 065
     Dates: start: 201503
  4. LUCENTIS [Suspect]
     Active Substance: RANIBIZUMAB
     Dosage: UNK
     Route: 065
     Dates: start: 201810
  5. LUCENTIS [Suspect]
     Active Substance: RANIBIZUMAB
     Route: 065
     Dates: start: 201410
  6. LUCENTIS [Suspect]
     Active Substance: RANIBIZUMAB
     Dosage: UNK
     Route: 065
     Dates: start: 201903
  7. LUCENTIS [Suspect]
     Active Substance: RANIBIZUMAB
     Dosage: UNK
     Route: 065
     Dates: start: 201512
  8. LUCENTIS [Suspect]
     Active Substance: RANIBIZUMAB
     Dosage: UNK, BETWEEN MAR 2019 AND JAN 2020 (6 INTRAVITREAL INJECTIONS)
     Route: 031
  9. LUCENTIS [Suspect]
     Active Substance: RANIBIZUMAB
     Dosage: UNK MAY 2020 TO JUL 2020
     Route: 065
  10. LUCENTIS [Suspect]
     Active Substance: RANIBIZUMAB
     Dosage: UNK
     Route: 065
     Dates: start: 202009

REACTIONS (12)
  - Subretinal fluid [Unknown]
  - Macular fibrosis [Unknown]
  - Blindness [Unknown]
  - Retinal thickening [Unknown]
  - Macular pigmentation [Unknown]
  - Retinal oedema [Unknown]
  - Cataract subcapsular [Unknown]
  - Osteoporosis [Unknown]
  - Visual impairment [Unknown]
  - Cataract [Unknown]
  - Subretinal fibrosis [Unknown]
  - Visual acuity reduced [Unknown]

NARRATIVE: CASE EVENT DATE: 201901
